FAERS Safety Report 4395007-7 (Version None)
Quarter: 2004Q3

REPORT INFORMATION
  Report Type: 
  Country: None (occurrence: None)
  Receive Date: 20040712
  Receipt Date: 20040623
  Transmission Date: 20050211
  Serious: Yes (Other)
  Sender: FDA-Public Use
  Company Number: PHBS2004JP08511

PATIENT
  Age: 75 Year
  Sex: Female

DRUGS (3)
  1. CARBAMAZEPINE [Suspect]
     Route: 048
  2. LOXOPROFEN SODIUM [Suspect]
     Route: 048
  3. TROXIPIDE [Suspect]
     Route: 048

REACTIONS (9)
  - DRUG ERUPTION [None]
  - DRUG HYPERSENSITIVITY [None]
  - GENERALISED ERYTHEMA [None]
  - LYMPHOCYTIC INFILTRATION [None]
  - MYCOSIS FUNGOIDES [None]
  - PRURITUS [None]
  - PYREXIA [None]
  - SKIN DESQUAMATION [None]
  - SUBCUTANEOUS ABSCESS [None]
